FAERS Safety Report 5202281-3 (Version None)
Quarter: 2007Q1

REPORT INFORMATION
  Report Type: 
  Country: None (occurrence: None)
  Receive Date: 20070109
  Receipt Date: 20070102
  Transmission Date: 20070707
  Serious: Yes (Life-Threatening, Hospitalization)
  Sender: FDA-Public Use
  Company Number: GB-GLAXOSMITHKLINE-B0453267A

PATIENT
  Age: 10 Year
  Weight: 48.7 kg

DRUGS (1)
  1. ACYCLOVIR [Suspect]
     Indication: ENCEPHALITIS
     Dosage: 700MG THREE TIMES PER DAY
     Route: 042
     Dates: start: 20061125, end: 20061127

REACTIONS (1)
  - RENAL IMPAIRMENT [None]
